FAERS Safety Report 4791437-X (Version None)
Quarter: 2005Q4

REPORT INFORMATION
  Report Type: 
  Country: None (occurrence: None)
  Receive Date: 20051007
  Receipt Date: 20050823
  Transmission Date: 20060501
  Serious: Yes (Other)
  Sender: FDA-Public Use
  Company Number: US-ROCHE-415440

PATIENT
  Age: 59 Year
  Sex: Female
  Weight: 50.3 kg

DRUGS (1)
  1. BONIVA [Suspect]
     Indication: OSTEOPOROSIS
     Dosage: ADDITIONAL INDICATION: OSTEOPENIA.
     Route: 048
     Dates: start: 20050715, end: 20050815

REACTIONS (2)
  - ARTHRALGIA [None]
  - JOINT SWELLING [None]
